FAERS Safety Report 6176533-7 (Version None)
Quarter: 2009Q2

REPORT INFORMATION
  Report Type: 
  Country: None (occurrence: None)
  Receive Date: 20090501
  Receipt Date: 20090424
  Transmission Date: 20091009
  Serious: Yes (Other)
  Sender: FDA-Public Use
  Company Number: US-ELI_LILLY_AND_COMPANY-US200904005967

PATIENT
  Sex: Female

DRUGS (3)
  1. EVISTA [Suspect]
     Indication: OSTEOPENIA
     Dosage: UNK, UNKNOWN
     Route: 065
     Dates: start: 20080101
  2. EVISTA [Suspect]
     Dosage: UNK, UNKNOWN
     Route: 065
     Dates: start: 20081001, end: 20081101
  3. EVISTA [Suspect]
     Dosage: UNK, UNKNOWN
     Route: 065
     Dates: start: 20090201

REACTIONS (14)
  - ARTERIOSCLEROSIS [None]
  - BENIGN RENAL NEOPLASM [None]
  - BLOOD CHOLESTEROL INCREASED [None]
  - BLOOD TRIGLYCERIDES INCREASED [None]
  - DYSPEPSIA [None]
  - HYPOAESTHESIA FACIAL [None]
  - MALAISE [None]
  - OVARIAN CYST [None]
  - PALPITATIONS [None]
  - SALIVARY GLAND ADENOMA [None]
  - SLEEP APNOEA SYNDROME [None]
  - TACHYCARDIA [None]
  - URETERIC CANCER [None]
  - VASCULAR CALCIFICATION [None]
